FAERS Safety Report 26170514 (Version 2)
Quarter: 2025Q4

REPORT INFORMATION
  Report Type: Spontaneous
  Country: EU (occurrence: EU)
  Receive Date: 20251217
  Receipt Date: 20251221
  Transmission Date: 20260117
  Serious: Yes (Other)
  Sender: CSL BEHRING
  Company Number: EU-CSL-17509

PATIENT
  Age: 42 Year
  Sex: Female

DRUGS (4)
  1. ANDEMBRY [Suspect]
     Active Substance: GARADACIMAB-GXII
     Indication: Hereditary angioedema
     Dosage: 200 MG, QMT
     Route: 058
     Dates: start: 202507
  2. ANDEMBRY [Suspect]
     Active Substance: GARADACIMAB-GXII
     Indication: Prophylaxis
     Dosage: UNK
     Route: 065
     Dates: start: 20251015
  3. ANDEMBRY [Suspect]
     Active Substance: GARADACIMAB-GXII
     Dosage: UNK
     Route: 065
     Dates: start: 20251115
  4. ANDEMBRY [Suspect]
     Active Substance: GARADACIMAB-GXII
     Dosage: UNK, QMT
     Route: 058
     Dates: start: 202507, end: 20251115

REACTIONS (1)
  - Hereditary angioedema [Not Recovered/Not Resolved]

NARRATIVE: CASE EVENT DATE: 20251104
